FAERS Safety Report 12178133 (Version 2)
Quarter: 2016Q1

REPORT INFORMATION
  Report Type: Spontaneous
  Country: IT (occurrence: IT)
  Receive Date: 20160314
  Receipt Date: 20160317
  Transmission Date: 20160526
  Serious: Yes (Hospitalization, Other)
  Sender: FDA-Public Use
  Company Number: PHHY2016IT028445

PATIENT
  Age: 53 Year
  Sex: Female

DRUGS (9)
  1. HALDOL [Suspect]
     Active Substance: HALOPERIDOL
     Indication: BIPOLAR DISORDER
  2. LERCADIP [Suspect]
     Active Substance: LERCANIDIPINE HYDROCHLORIDE
     Indication: PRODUCT USED FOR UNKNOWN INDICATION
     Dosage: 300 MG, ONCE/SINGLE
     Route: 048
     Dates: end: 20160216
  3. TRIATEC [Suspect]
     Active Substance: RAMIPRIL
     Indication: PRODUCT USED FOR UNKNOWN INDICATION
     Dosage: 40 MG, ONCE/SINGLE
     Route: 065
     Dates: start: 20160214, end: 20160214
  4. LORAZEPAM ABC [Suspect]
     Active Substance: LORAZEPAM
     Indication: ANXIETY
     Dosage: 25 MG, ONCE/SINGLE
     Route: 048
     Dates: start: 20160214, end: 20160214
  5. LERCADIP [Suspect]
     Active Substance: LERCANIDIPINE HYDROCHLORIDE
     Dosage: 10 MG, DIE
     Route: 065
  6. BROMAZEPAM [Suspect]
     Active Substance: BROMAZEPAM
     Indication: ANXIETY
     Dosage: 40 ML, ONCE/SINGLE
     Route: 048
     Dates: start: 20160214, end: 20160214
  7. OLANZAPINE. [Suspect]
     Active Substance: OLANZAPINE
     Dosage: 10 MG
     Route: 065
  8. OLANZAPINE. [Suspect]
     Active Substance: OLANZAPINE
     Indication: BIPOLAR DISORDER
     Dosage: 140 MG, ONCE/SINGLE
     Route: 048
     Dates: start: 20160214, end: 20160214
  9. HALDOL [Suspect]
     Active Substance: HALOPERIDOL
     Indication: MENTAL DISORDER
     Dosage: 30 ML, ONCE/SINGLE
     Route: 048
     Dates: start: 20160214, end: 20160214

REACTIONS (4)
  - Coma [Recovered/Resolved]
  - Hypotension [Recovered/Resolved]
  - Self injurious behaviour [Recovered/Resolved]
  - Intentional overdose [Recovered/Resolved]

NARRATIVE: CASE EVENT DATE: 20160214
